FAERS Safety Report 5961843-6 (Version None)
Quarter: 2008Q4

REPORT INFORMATION
  Report Type: 
  Country: None (occurrence: None)
  Receive Date: 20081121
  Receipt Date: 20080303
  Transmission Date: 20090506
  Serious: No
  Sender: FDA-Public Use
  Company Number: US-BRISTOL-MYERS SQUIBB COMPANY-14099865

PATIENT
  Age: 60 Year
  Sex: Male
  Weight: 109 kg

DRUGS (2)
  1. AVALIDE [Suspect]
     Indication: HYPERTENSION
     Dates: start: 19960101
  2. XALATAN [Concomitant]

REACTIONS (1)
  - URINE ODOUR ABNORMAL [None]
